FAERS Safety Report 6634390-6 (Version None)
Quarter: 2010Q1

REPORT INFORMATION
  Report Type: 
  Country: None (occurrence: None)
  Receive Date: 20100315
  Receipt Date: 20100303
  Transmission Date: 20100710
  Serious: Yes (Death)
  Sender: FDA-Public Use
  Company Number: JP-ROCHE-688290

PATIENT
  Sex: Female

DRUGS (6)
  1. PEGASYS [Suspect]
     Indication: CHRONIC HEPATITIS
     Dosage: FREQUENCY: 1/
     Route: 058
     Dates: start: 20100219, end: 20100219
  2. GLUFAST [Concomitant]
     Dosage: DRUG REPORTED AS: GLUFAST(MITIGLINIDE CALCIUM HYDRATE)
     Route: 048
     Dates: start: 20081001, end: 20100225
  3. URSO 250 [Concomitant]
     Route: 048
     Dates: start: 20060101, end: 20100225
  4. BLOPRESS [Concomitant]
     Dosage: DRUG:BLOPRESS(CANDESARTAN CILEXETIL)
     Route: 048
     Dates: start: 20040101, end: 20100225
  5. LASIX [Concomitant]
     Route: 048
     Dates: start: 20040101, end: 20100225
  6. ALDACTONE [Concomitant]
     Route: 048
     Dates: start: 20040101, end: 20100225

REACTIONS (1)
  - ACUTE RESPIRATORY DISTRESS SYNDROME [None]
